FAERS Safety Report 10681075 (Version 3)
Quarter: 2015Q1

REPORT INFORMATION
  Report Type: Spontaneous
  Country: JP (occurrence: JP)
  Receive Date: 20141229
  Receipt Date: 20150209
  Transmission Date: 20150720
  Serious: Yes (Hospitalization, Other)
  Sender: FDA-Public Use
  Company Number: JP-AMGEN-JPNSP2014091249

PATIENT
  Age: 91 Year
  Sex: Female

DRUGS (4)
  1. ENBREL [Suspect]
     Active Substance: ETANERCEPT
     Indication: RHEUMATOID ARTHRITIS
     Dosage: 25 MG, WEEKLY
     Route: 058
     Dates: start: 20141003, end: 20141024
  2. BOIOGITO                           /07975201/ [Interacting]
     Active Substance: HERBALS
     Indication: JOINT EFFUSION
     Dosage: 2.5 MG, 2X/DAY
     Route: 065
     Dates: start: 20141003, end: 20141110
  3. LASIX [Concomitant]
     Active Substance: FUROSEMIDE
     Dosage: UNK
  4. BOIOGITO                           /07975201/ [Interacting]
     Active Substance: HERBALS
     Indication: SWELLING
     Dosage: UNK
     Route: 065

REACTIONS (7)
  - Gait disturbance [Unknown]
  - Cough [Unknown]
  - Oedema peripheral [Recovering/Resolving]
  - Face oedema [Recovering/Resolving]
  - Cardiac failure [Unknown]
  - Drug interaction [Unknown]
  - Condition aggravated [Unknown]

NARRATIVE: CASE EVENT DATE: 201411
